FAERS Safety Report 9375869 (Version 1)
Quarter: 2013Q2

REPORT INFORMATION
  Report Type: Other
  Country: GB (occurrence: GB)
  Receive Date: 20130628
  Receipt Date: 20130628
  Transmission Date: 20140414
  Serious: Yes (Hospitalization)
  Sender: FDA-Public Use
  Company Number: GB-WATSON-2013-11640

PATIENT
  Sex: 0

DRUGS (1)
  1. MIRTAZAPINE (UNKNOWN) [Suspect]
     Indication: DEPRESSIVE SYMPTOM
     Dosage: 15 MG, UNKNOWN
     Route: 065
     Dates: start: 2006

REACTIONS (5)
  - Depressed mood [Unknown]
  - Self-injurious ideation [Unknown]
  - Suicidal ideation [Unknown]
  - Poor quality sleep [Unknown]
  - Feeling guilty [Unknown]
